FAERS Safety Report 4820612-0 (Version None)
Quarter: 2005Q4

REPORT INFORMATION
  Report Type: 
  Country: None (occurrence: None)
  Receive Date: 20051104
  Receipt Date: 20051031
  Transmission Date: 20060501
  Serious: Yes (Hospitalization)
  Sender: FDA-Public Use
  Company Number: 2005-10-1010

PATIENT
  Age: 46 Year
  Sex: Male
  Weight: 118.2 kg

DRUGS (8)
  1. DYAZIDE [Suspect]
     Indication: DRUG USE FOR UNKNOWN INDICATION
     Route: 048
  2. PEGYLATED INTERFERON ALPHA 2B [Suspect]
     Indication: HEPATITIS C
     Route: 058
     Dates: start: 20050708
  3. RIBAVIRIN [Suspect]
     Indication: HEPATITIS C
     Route: 048
     Dates: start: 20050708
  4. EFFEXOR [Suspect]
     Indication: DRUG USE FOR UNKNOWN INDICATION
     Route: 065
  5. HYDROCHLOROTHIAZIDE [Concomitant]
     Dosage: 50MG UNKNOWN
     Route: 048
  6. LOPRESSOR [Concomitant]
     Dosage: 50MG UNKNOWN
     Route: 048
  7. LOTENSIN [Concomitant]
     Dosage: 20MG UNKNOWN
     Route: 048
  8. ZYRTEC [Concomitant]
     Dosage: 10MG UNKNOWN
     Route: 048

REACTIONS (4)
  - BLOOD SODIUM DECREASED [None]
  - DIARRHOEA [None]
  - NAUSEA [None]
  - VISUAL DISTURBANCE [None]
